FAERS Safety Report 9109515 (Version 1)
Quarter: 2013Q1

REPORT INFORMATION
  Report Type: Spontaneous
  Country: FR (occurrence: FR)
  Receive Date: 20130222
  Receipt Date: 20130222
  Transmission Date: 20140127
  Serious: Yes (Hospitalization)
  Sender: FDA-Public Use
  Company Number: FR-B.I. PHARMACEUTICALS,INC./RIDGEFIELD-2013-FF-00515FF

PATIENT
  Age: 72 Year
  Sex: Male

DRUGS (3)
  1. PRADAXA [Suspect]
     Indication: ATRIAL FIBRILLATION
     Dosage: 300 MG
     Route: 048
     Dates: start: 20121213, end: 20130118
  2. CORGARD [Concomitant]
     Indication: ATRIAL FIBRILLATION
     Dosage: 80 MG
     Route: 048
  3. CORDARONE [Concomitant]
     Indication: ATRIAL FIBRILLATION
     Dosage: 1200 MG
     Route: 048
     Dates: start: 20120112

REACTIONS (2)
  - Drug ineffective [Not Recovered/Not Resolved]
  - Atrial thrombosis [Not Recovered/Not Resolved]
